FAERS Safety Report 6168404-7 (Version None)
Quarter: 2009Q2

REPORT INFORMATION
  Report Type: 
  Country: None (occurrence: None)
  Receive Date: 20090427
  Receipt Date: 20090423
  Transmission Date: 20091009
  Serious: Yes (Other)
  Sender: FDA-Public Use
  Company Number: BE-BRISTOL-MYERS SQUIBB COMPANY-14584973

PATIENT
  Age: 54 Year
  Sex: Female

DRUGS (7)
  1. WARFARIN SODIUM [Suspect]
     Indication: PROPHYLAXIS
  2. LISINOPRIL [Suspect]
  3. ATORVASTATIN [Suspect]
  4. CARVEDILOL [Suspect]
  5. AMIODARONE HCL [Suspect]
  6. SPIRONOLACTONE [Suspect]
  7. ALLOPURINOL [Suspect]

REACTIONS (1)
  - CALCIPHYLAXIS [None]
